FAERS Safety Report 8155742-1 (Version None)
Quarter: 2012Q1

REPORT INFORMATION
  Report Type: 
  Country: None (occurrence: None)
  Receive Date: 20120222
  Receipt Date: 20120213
  Transmission Date: 20120608
  Serious: Yes (Hospitalization)
  Sender: FDA-Public Use
  Company Number: US-US-EMD SERONO, INC.-7113434

PATIENT
  Sex: Male

DRUGS (10)
  1. ETOPOSIDE [Suspect]
     Indication: ACUTE MYELOID LEUKAEMIA
     Dates: start: 20111228
  2. MDX-1338 [Suspect]
     Indication: ACUTE MYELOID LEUKAEMIA
     Route: 042
     Dates: start: 20111220
  3. DAPSONE [Concomitant]
  4. FLUCONAZOLE [Concomitant]
     Dates: end: 20120109
  5. NOVANTRONE [Suspect]
     Indication: ACUTE MYELOID LEUKAEMIA
     Dates: start: 20111228
  6. CYTARABINE [Suspect]
     Indication: ACUTE MYELOID LEUKAEMIA
     Dates: start: 20111228
  7. MEROPENEM [Concomitant]
     Dates: start: 20120103, end: 20120118
  8. ZOLPIDEM [Concomitant]
  9. ACYCLOVIR [Concomitant]
  10. OMEPRAZOLE [Concomitant]

REACTIONS (2)
  - ENTEROCOCCAL INFECTION [None]
  - BRONCHOPULMONARY ASPERGILLOSIS [None]
